FAERS Safety Report 7065760-2 (Version None)
Quarter: 2010Q4

REPORT INFORMATION
  Report Type: 
  Country: None (occurrence: None)
  Receive Date: 20101027
  Receipt Date: 20101022
  Transmission Date: 20110411
  Serious: Yes (Death)
  Sender: FDA-Public Use
  Company Number: PHHY2010CA70556

PATIENT
  Sex: Female

DRUGS (13)
  1. ACLASTA [Suspect]
     Indication: OSTEOPOROSIS
     Dosage: UNK
     Dates: start: 20100115
  2. SINEMET [Concomitant]
     Dosage: 200/50, TID
  3. CELEXA [Concomitant]
  4. ZOCOL [Concomitant]
     Dosage: 20 MG, QD
  5. DIDROCAL [Concomitant]
  6. ALTACE [Concomitant]
     Dosage: 100 MG
     Route: 048
  7. CALCIUM [Concomitant]
     Dosage: 500 MG, BID
  8. ASPIRIN [Concomitant]
     Dosage: 81 MG, QD
  9. VITAMIN D [Concomitant]
     Dosage: 1000 IU, QD
  10. IMOVANE [Concomitant]
     Dosage: 3.75MG Y2 HRS PRN
  11. WARFARIN SODIUM [Concomitant]
     Dosage: 4MG
  12. LASIX [Concomitant]
     Dosage: 40 MG, QD
  13. PARIET [Concomitant]
     Dosage: 20 MG, QD

REACTIONS (1)
  - DEATH [None]
